FAERS Safety Report 4950295-0 (Version None)
Quarter: 2006Q1

REPORT INFORMATION
  Report Type: 
  Country: None (occurrence: None)
  Receive Date: 20060315
  Receipt Date: 20060222
  Transmission Date: 20060701
  Serious: Yes (Hospitalization)
  Sender: FDA-Public Use
  Company Number: GB200602004427

PATIENT
  Sex: Male
  Weight: 89 kg

DRUGS (1)
  1. ZYPREXA [Suspect]
     Indication: SCHIZOPHRENIA
     Dosage: 1 D/F, EACH EVENING, ORAL
     Route: 048
     Dates: start: 19990101

REACTIONS (1)
  - DEEP VEIN THROMBOSIS [None]
